FAERS Safety Report 25487075 (Version 8)
Quarter: 2025Q4

REPORT INFORMATION
  Report Type: Spontaneous
  Country: EU (occurrence: EU)
  Receive Date: 20250627
  Receipt Date: 20251226
  Transmission Date: 20260119
  Serious: Yes (Other)
  Sender: SANDOZ
  Company Number: EU-002147023-NVSC2025DE099307

PATIENT
  Sex: Female

DRUGS (3)
  1. ANASTROZOLE [Suspect]
     Active Substance: ANASTROZOLE
     Indication: Hormone receptor positive HER2 negative breast cancer
     Dosage: 1 MG, QD, (TOTAL DAILY DOSE)
     Dates: start: 20250603
  2. KISQALI [Suspect]
     Active Substance: RIBOCICLIB SUCCINATE
     Indication: Hormone receptor positive HER2 negative breast cancer
     Dosage: 400 MG, QD, (TOTAL DAILY DOSE) (21 DAYS DAILY INTAKE), (7 DAYS PAUSE)
     Dates: start: 20250603, end: 20250616
  3. KISQALI [Suspect]
     Active Substance: RIBOCICLIB SUCCINATE
     Dosage: 400 MG, QD, (21 DAYS TOTAL DAILY DOSE)  (21 DAYS DAILY INTAKE), (7 DAYS PAUSE)
     Dates: start: 20250813

REACTIONS (4)
  - Electrocardiogram ST segment depression [Recovered/Resolved]
  - Ventricular extrasystoles [Recovered/Resolved]
  - Abdominal discomfort [Not Recovered/Not Resolved]
  - Alopecia [Not Recovered/Not Resolved]

NARRATIVE: CASE EVENT DATE: 20250616
